FAERS Safety Report 22610252 (Version 1)
Quarter: 2023Q2

REPORT INFORMATION
  Report Type: Spontaneous
  Country: CN (occurrence: CN)
  Receive Date: 20230616
  Receipt Date: 20230616
  Transmission Date: 20230721
  Serious: Yes (Hospitalization)
  Sender: FDA-Public Use
  Company Number: CN-HALEON-CNCH2023APC027674

PATIENT

DRUGS (2)
  1. IBUPROFEN [Suspect]
     Active Substance: IBUPROFEN
     Indication: Pyrexia
     Dosage: 1 DF, TID
     Route: 048
     Dates: start: 20230604, end: 20230604
  2. HERBALS [Suspect]
     Active Substance: HERBALS
     Indication: Pyrexia
     Dosage: 1 DF, TID
     Route: 048
     Dates: start: 20230604, end: 20230604

REACTIONS (7)
  - Urticaria [Recovering/Resolving]
  - Erythema [Recovering/Resolving]
  - Condition aggravated [Recovering/Resolving]
  - Chest discomfort [Recovered/Resolved]
  - Skin temperature [Recovering/Resolving]
  - Pruritus [Not Recovered/Not Resolved]
  - Incorrect dose administered [Unknown]

NARRATIVE: CASE EVENT DATE: 20230604
